FAERS Safety Report 6756891-2 (Version None)
Quarter: 2010Q2

REPORT INFORMATION
  Report Type: 
  Country: None (occurrence: None)
  Receive Date: 20100603
  Receipt Date: 20100603
  Transmission Date: 20101027
  Serious: Yes (Hospitalization)
  Sender: FDA-Public Use
  Company Number: None

PATIENT
  Age: 57 Year
  Sex: Male
  Weight: 79 kg

DRUGS (1)
  1. VARDENAFIL [Suspect]
     Dosage: 1/2 TAB PRN PO
     Route: 048
     Dates: start: 20091020

REACTIONS (1)
  - DIZZINESS [None]
